FAERS Safety Report 5977055-6 (Version None)
Quarter: 2008Q4

REPORT INFORMATION
  Report Type: 
  Country: None (occurrence: None)
  Receive Date: 20081203
  Receipt Date: 20081125
  Transmission Date: 20090506
  Serious: Yes (Hospitalization)
  Sender: FDA-Public Use
  Company Number: US-BIOGENIDEC-179963

PATIENT
  Age: 51 Year
  Sex: Female
  Weight: 97 kg

DRUGS (5)
  1. AVONEX [Suspect]
     Indication: MULTIPLE SCLEROSIS
     Route: 030
     Dates: start: 19970101, end: 20030101
  2. AVONEX [Suspect]
     Route: 030
     Dates: start: 20030101
  3. EFFEXOR [Concomitant]
     Indication: DEPRESSION
  4. WELLBUTRIN [Concomitant]
     Indication: FATIGUE
     Dates: start: 20020101
  5. PROVIGIL [Concomitant]
     Indication: FATIGUE
     Dates: end: 20020101

REACTIONS (12)
  - BREAST CANCER [None]
  - CARDIOMYOPATHY [None]
  - FATIGUE [None]
  - HOT FLUSH [None]
  - HYPERTENSION [None]
  - IMPLANT SITE REACTION [None]
  - MULTIPLE SCLEROSIS [None]
  - MUSCLE SPASMS [None]
  - MYOCARDIAL INFARCTION [None]
  - NASOPHARYNGITIS [None]
  - PNEUMONIA [None]
  - URINARY INCONTINENCE [None]
